FAERS Safety Report 9683464 (Version 1)
Quarter: 2013Q4

REPORT INFORMATION
  Report Type: Spontaneous
  Country: US (occurrence: US)
  Receive Date: 20131112
  Receipt Date: 20131112
  Transmission Date: 20140711
  Serious: Yes (Other)
  Sender: FDA-Public Use
  Company Number: US-EISAI INC-AP356-00247-SPO-US

PATIENT
  Sex: Female

DRUGS (2)
  1. BELVIQ (LORCASERIN HYDROCHLORIDE) [Suspect]
     Indication: WEIGHT DECREASED
     Route: 048
     Dates: start: 2013, end: 2013
  2. METOPROLOL [Concomitant]
     Indication: HYPERTENSION
     Dosage: UNKNOWN
     Dates: end: 2013

REACTIONS (2)
  - Atrial fibrillation [Recovering/Resolving]
  - Bradycardia [Recovering/Resolving]
